FAERS Safety Report 6382736-9 (Version None)
Quarter: 2009Q3

REPORT INFORMATION
  Report Type: 
  Country: None (occurrence: None)
  Receive Date: 20090930
  Receipt Date: 20090921
  Transmission Date: 20100115
  Serious: Yes (Hospitalization)
  Sender: FDA-Public Use
  Company Number: FR-TEVA-210145ISR

PATIENT
  Sex: Male

DRUGS (2)
  1. VINCRISTINE [Suspect]
     Indication: NEPHROBLASTOMA
     Route: 042
     Dates: start: 20090604, end: 20090730
  2. DACTINOMYCIN [Suspect]
     Indication: NEPHROBLASTOMA
     Route: 042
     Dates: start: 20090604, end: 20090724

REACTIONS (4)
  - ABDOMINAL PAIN [None]
  - ASCITES [None]
  - EYELID OEDEMA [None]
  - VENOOCCLUSIVE LIVER DISEASE [None]
